FAERS Safety Report 23853351 (Version 2)
Quarter: 2024Q2

REPORT INFORMATION
  Report Type: Spontaneous
  Country: IT (occurrence: IT)
  Receive Date: 20240514
  Receipt Date: 20240521
  Transmission Date: 20240716
  Serious: Yes (Other)
  Sender: FDA-Public Use
  Company Number: IT-SUN PHARMACEUTICAL INDUSTRIES LTD-2024RR-446100

PATIENT
  Age: 68 Year
  Sex: Male
  Weight: 60 kg

DRUGS (3)
  1. OXALIPLATIN [Suspect]
     Active Substance: OXALIPLATIN
     Indication: Rectosigmoid cancer metastatic
     Dosage: 100 MILLIGRAM
     Route: 040
     Dates: start: 20240206, end: 20240206
  2. FLUOROURACIL [Concomitant]
     Active Substance: FLUOROURACIL
     Indication: Rectosigmoid cancer metastatic
     Dosage: 3400 MILLIGRAM
     Route: 040
     Dates: start: 20240206, end: 20240206
  3. VECTIBIX [Concomitant]
     Active Substance: PANITUMUMAB
     Indication: Rectosigmoid cancer metastatic
     Dosage: 360 MILLIGRAM
     Route: 065
     Dates: start: 20240206, end: 20240206

REACTIONS (1)
  - Drug hypersensitivity [Recovered/Resolved]

NARRATIVE: CASE EVENT DATE: 20240206
